FAERS Safety Report 9983454 (Version 4)
Quarter: 2014Q2

REPORT INFORMATION
  Report Type: Spontaneous
  Country: IT (occurrence: IT)
  Receive Date: 20140307
  Receipt Date: 20140508
  Transmission Date: 20141212
  Serious: Yes (Death)
  Sender: FDA-Public Use
  Company Number: IT-B.I. PHARMACEUTICALS,INC./RIDGEFIELD-2014-BI-09435IT

PATIENT
  Age: 83 Year
  Sex: Male

DRUGS (6)
  1. PRADAXA [Suspect]
     Indication: ATRIAL FIBRILLATION
     Dosage: 220 MG
     Route: 065
     Dates: start: 20131001
  2. PANTOPRAZOLE [Concomitant]
     Route: 065
  3. FUROSEMIDE [Concomitant]
     Route: 065
  4. ISOPTIN [Concomitant]
     Route: 065
  5. OLPRESS [Concomitant]
     Route: 065
  6. TAPAZOLE [Concomitant]
     Route: 065

REACTIONS (1)
  - Cerebral haemorrhage [Fatal]
